FAERS Safety Report 9187463 (Version 4)
Quarter: 2013Q2

REPORT INFORMATION
  Report Type: Spontaneous
  Country: US (occurrence: US)
  Receive Date: 20130325
  Receipt Date: 20130523
  Transmission Date: 20140414
  Serious: Yes (Other)
  Sender: FDA-Public Use
  Company Number: US-PFIZER INC-2013094303

PATIENT
  Age: 60 Year
  Sex: Female
  Weight: 113.38 kg

DRUGS (5)
  1. ZOLOFT [Suspect]
     Indication: MAJOR DEPRESSION
     Dosage: 100 MG, 1X/DAY
  2. ZOLOFT [Suspect]
     Dosage: 150 MG, 1X/DAY
  3. ZOLOFT [Suspect]
     Dosage: 100 MG, 1X/DAY
  4. ASPIRIN [Concomitant]
     Dosage: 81 MG, UNK
  5. IRON [Concomitant]
     Dosage: 325 MG, WEEKLY

REACTIONS (4)
  - Hypertension [Unknown]
  - Cardiac disorder [Unknown]
  - Thyroid disorder [Unknown]
  - Weight increased [Unknown]
